FAERS Safety Report 9610885 (Version 4)
Quarter: 2014Q2

REPORT INFORMATION
  Report Type: Report from Study
  Country: CA (occurrence: CA)
  Receive Date: 20131009
  Receipt Date: 20140614
  Transmission Date: 20141212
  Serious: Yes (Hospitalization)
  Sender: FDA-Public Use
  Company Number: CA-009507513-1310CAN003154

PATIENT
  Age: 75 Year
  Sex: Female
  Weight: 95.11 kg

DRUGS (26)
  1. DEXAMETHASONE [Suspect]
     Indication: DIFFUSE LARGE B-CELL LYMPHOMA RECURRENT
     Dosage: 12 MG, QD
     Route: 048
     Dates: start: 20130823
  2. INOTUZUMAB OZOGAMICIN [Suspect]
     Indication: NON-HODGKIN^S LYMPHOMA
     Dosage: 2.8 MG, DAY 2 OF EACH 28 DAY CYCLE
     Route: 042
     Dates: start: 20130315, end: 20130809
  3. RITUXIMAB [Suspect]
     Indication: NON-HODGKIN^S LYMPHOMA
     Dosage: 775 MG, DAY 1 OF EACH 28 CAY CYCLE
     Route: 042
     Dates: start: 20130314, end: 20130808
  4. GEMCITABINE [Suspect]
     Indication: DIFFUSE LARGE B-CELL LYMPHOMA RECURRENT
     Dosage: 1501 MG, QD
     Route: 042
     Dates: start: 20130823
  5. CISPLATIN [Suspect]
     Indication: DIFFUSE LARGE B-CELL LYMPHOMA RECURRENT
     Dosage: 112 MG, QD
     Route: 042
     Dates: start: 20130823
  6. METFORMIN [Concomitant]
     Indication: DIABETES MELLITUS
     Dosage: 500 MG, BID
     Route: 048
     Dates: start: 1995
  7. RAMIPRIL [Concomitant]
     Indication: HYPERTENSION
     Dosage: 10 MG, QD
     Route: 048
     Dates: start: 1997
  8. PANTOPRAZOLE [Concomitant]
     Indication: GASTROOESOPHAGEAL REFLUX DISEASE
     Dosage: 40 MG, QD
     Route: 048
     Dates: start: 1985
  9. SYNTHROID [Concomitant]
     Indication: HYPOTHYROIDISM
     Dosage: 0.088 MG, QD
     Route: 048
     Dates: start: 1985
  10. FUROSEMIDE [Concomitant]
     Indication: HYPERTENSION
     Dosage: 20 MG, QD
     Route: 048
     Dates: start: 2007
  11. ERGOCALCIFEROL [Concomitant]
     Indication: ROUTINE HEALTH MAINTENANCE
     Dosage: 1000 IU, QD
     Route: 048
     Dates: start: 2010
  12. CHONDROITIN SULFATE SODIUM (+) GLUCOSAMINE SULFATE [Concomitant]
     Indication: ROUTINE HEALTH MAINTENANCE
     Dosage: 900 MG, QD
     Route: 048
     Dates: start: 1996
  13. COD LIVER OIL [Concomitant]
     Indication: ROUTINE HEALTH MAINTENANCE
     Dosage: 1 DF, QD
     Route: 048
     Dates: start: 1996
  14. CORAL CALCIUM [Concomitant]
     Indication: ROUTINE HEALTH MAINTENANCE
     Dosage: 1000 MG, QD
     Route: 048
     Dates: start: 1996
  15. ASPIRIN [Concomitant]
     Indication: HYPERTENSION
     Dosage: 81 MG, QD
     Route: 065
     Dates: start: 2007
  16. BETAHISTINE [Concomitant]
     Indication: VERTIGO
     Dosage: 16 MG, TID
     Route: 048
     Dates: start: 2002
  17. SENOKOT (SENNA) [Concomitant]
     Indication: CONSTIPATION
     Dosage: 1 OR 2 TABLETS, PRN
     Route: 048
  18. DOCUSATE SODIUM [Concomitant]
     Indication: CONSTIPATION
     Dosage: 100 MG, QD
     Route: 048
     Dates: start: 2011
  19. VITAMIN C [Concomitant]
     Indication: ROUTINE HEALTH MAINTENANCE
     Dosage: 1000 MG, QD
     Route: 048
     Dates: start: 2001
  20. ATIVAN [Concomitant]
     Indication: INSOMNIA
     Dosage: 1 MG, HS
     Route: 048
     Dates: start: 2013
  21. ALEVE [Concomitant]
     Indication: INSOMNIA
     Dosage: 1 DF, HS
     Route: 048
     Dates: start: 2010
  22. CODEINE [Concomitant]
     Indication: COUGH
     Dosage: 1 DF, Q4H, PRN
     Route: 048
     Dates: start: 20130621
  23. OXYGEN [Concomitant]
     Indication: DYSPNOEA
     Dosage: 3 L, UNK, CONTINUOSLY
     Route: 045
     Dates: start: 201308, end: 201309
  24. ONDANSETRON [Concomitant]
     Indication: PROPHYLAXIS OF NAUSEA AND VOMITING
     Dosage: 8 MG, QD
     Route: 048
     Dates: start: 20130823, end: 20130825
  25. SODIUM CHLORIDE [Concomitant]
     Indication: CHEMOTHERAPY
     Dosage: 1000 ML, ONCE
     Route: 042
     Dates: start: 20130823, end: 20130823
  26. MANNITOL [Concomitant]
     Indication: CHEMOTHERAPY
     Dosage: 50000 MG, QD
     Route: 042
     Dates: start: 20130823

REACTIONS (15)
  - Dehydration [Recovered/Resolved]
  - Hyponatraemia [Recovered/Resolved]
  - Dysuria [Unknown]
  - White blood cells urine positive [Unknown]
  - Nitrite urine present [Unknown]
  - Thrombocytopenia [Unknown]
  - Hypotension [Unknown]
  - Platelet count decreased [Recovering/Resolving]
  - Central venous catheterisation [Unknown]
  - Drain placement [Unknown]
  - Hyponatraemia [Recovering/Resolving]
  - Diarrhoea [Unknown]
  - Vomiting [Recovered/Resolved]
  - Nausea [Recovered/Resolved]
  - Drug effect incomplete [Unknown]
